FAERS Safety Report 16464494 (Version 4)
Quarter: 2020Q3

REPORT INFORMATION
  Report Type: Spontaneous
  Country: US (occurrence: US)
  Receive Date: 20190621
  Receipt Date: 20200924
  Transmission Date: 20201102
  Serious: Yes (Hospitalization, Other)
  Sender: FDA-Public Use
  Company Number: US-ELI_LILLY_AND_COMPANY-US201906009002

PATIENT
  Sex: Male

DRUGS (1)
  1. TRULICITY [Suspect]
     Active Substance: DULAGLUTIDE
     Indication: PRODUCT USED FOR UNKNOWN INDICATION
     Dosage: UNK UNK, UNKNOWN
     Route: 065
     Dates: start: 2017

REACTIONS (8)
  - Pancreatitis [Unknown]
  - Diarrhoea [Unknown]
  - Pain [Unknown]
  - Liver disorder [Unknown]
  - Illness [Unknown]
  - Fatigue [Unknown]
  - General physical health deterioration [Unknown]
  - Vomiting [Unknown]
